FAERS Safety Report 19508936 (Version 1)
Quarter: 2021Q3

REPORT INFORMATION
  Report Type: Spontaneous
  Country: FR (occurrence: FR)
  Receive Date: 20210708
  Receipt Date: 20210708
  Transmission Date: 20211014
  Serious: Yes (Death)
  Sender: FDA-Public Use
  Company Number: FR-BAUSCH-BL-2021-022336

PATIENT
  Age: 71 Year
  Sex: Female

DRUGS (4)
  1. DEXAMETHASONE. [Suspect]
     Active Substance: DEXAMETHASONE
     Indication: COVID-19 PNEUMONIA
     Route: 042
     Dates: start: 20210224
  2. PLAVIX [Suspect]
     Active Substance: CLOPIDOGREL BISULFATE
     Indication: CORONARY ANGIOPLASTY
     Route: 048
     Dates: start: 20210226, end: 20210303
  3. LOVENOX [Interacting]
     Active Substance: ENOXAPARIN SODIUM
     Indication: COVID-19 PNEUMONIA
     Route: 058
     Dates: start: 20210225, end: 20210303
  4. LOVENOX [Interacting]
     Active Substance: ENOXAPARIN SODIUM
     Route: 058
     Dates: start: 20210304, end: 20210306

REACTIONS (5)
  - Drug interaction [Fatal]
  - Product prescribing error [Fatal]
  - Gastrointestinal haemorrhage [Fatal]
  - Product selection error [Fatal]
  - Overdose [Fatal]

NARRATIVE: CASE EVENT DATE: 20210226
